FAERS Safety Report 8460105-5 (Version None)
Quarter: 2012Q2

REPORT INFORMATION
  Report Type: 
  Country: None (occurrence: None)
  Receive Date: 20120622
  Receipt Date: 20120613
  Transmission Date: 20120825
  Serious: Yes (Hospitalization)
  Sender: FDA-Public Use
  Company Number: US-ELI_LILLY_AND_COMPANY-US201206005635

PATIENT
  Age: 77 Year
  Sex: Female
  Weight: 67.27 kg

DRUGS (3)
  1. LETAIRIS [Concomitant]
     Indication: PULMONARY HYPERTENSION
     Dosage: UNK
     Route: 048
  2. REMODULIN [Concomitant]
     Dosage: UNK
  3. ADCIRCA [Suspect]
     Dosage: UNK

REACTIONS (2)
  - DYSPNOEA [None]
  - OEDEMA [None]
